FAERS Safety Report 9409149 (Version 1)
Quarter: 2013Q3

REPORT INFORMATION
  Report Type: Report from Study
  Country: CA (occurrence: CA)
  Receive Date: 20130719
  Receipt Date: 20130719
  Transmission Date: 20140515
  Serious: Yes (Hospitalization, Other)
  Sender: FDA-Public Use
  Company Number: CA-JNJFOC-20130704054

PATIENT
  Age: 63 Year
  Sex: Male
  Weight: 87 kg

DRUGS (18)
  1. REMICADE [Suspect]
     Indication: ANKYLOSING SPONDYLITIS
     Route: 042
     Dates: start: 20130613
  2. REMICADE [Suspect]
     Indication: ANKYLOSING SPONDYLITIS
     Route: 042
     Dates: start: 20100705, end: 20110810
  3. AVALIDE [Concomitant]
     Dosage: 300/12.5 MG
     Route: 065
  4. ALENDRONATE [Concomitant]
     Route: 065
  5. COUMADIN [Concomitant]
     Dosage: 3-5 MG DAILY
     Route: 065
  6. TIAZAC [Concomitant]
     Route: 048
  7. RABEPRAZOLE [Concomitant]
     Route: 048
  8. TYLENOL EXTRA STRENGTH [Concomitant]
     Dosage: 4-6 TABLETS
     Route: 065
  9. METHOTREXATE [Concomitant]
     Route: 048
  10. LEUCOVORIN [Concomitant]
     Route: 048
  11. VITAMIN B 12 [Concomitant]
     Route: 065
  12. FERROUS GLUCONATE [Concomitant]
     Route: 048
  13. VITAMIN D [Concomitant]
     Route: 065
  14. CELEBREX [Concomitant]
     Route: 065
  15. COVERSYL [Concomitant]
     Route: 048
  16. FOLIC ACID [Concomitant]
     Dosage: DAILY, EXCEPT DAY WHEN TAKING METHOTREXATE
     Route: 048
  17. LORAZEPAM [Concomitant]
     Route: 048
  18. HYDROMORPH CONTIN [Concomitant]
     Route: 048

REACTIONS (5)
  - Kaposi^s sarcoma [Unknown]
  - Localised infection [Unknown]
  - Influenza [Unknown]
  - Disorientation [Unknown]
  - Syncope [Unknown]
